FAERS Safety Report 25746679 (Version 1)
Quarter: 2025Q3

REPORT INFORMATION
  Report Type: Report from Study
  Country: JP (occurrence: JP)
  Receive Date: 20250901
  Receipt Date: 20250901
  Transmission Date: 20251021
  Serious: Yes (Other)
  Sender: Haleon PLC
  Company Number: JP-HALEON-2177560

PATIENT
  Sex: Male
  Weight: 84.5 kg

DRUGS (1)
  1. ALLI [Suspect]
     Active Substance: ORLISTAT
     Indication: Product used for unknown indication
     Route: 048
     Dates: start: 20240422

REACTIONS (4)
  - Gastric ulcer [Unknown]
  - Weight increased [Recovered/Resolved]
  - Therapeutic product effect incomplete [Unknown]
  - Wrong patient received product [Unknown]
